FAERS Safety Report 4456277-X (Version None)
Quarter: 2004Q3

REPORT INFORMATION
  Report Type: 
  Country: None (occurrence: None)
  Receive Date: 20040917
  Receipt Date: 20040827
  Transmission Date: 20050211
  Serious: Yes (Hospitalization)
  Sender: FDA-Public Use
  Company Number: USA040567048

PATIENT
  Age: 9 Year
  Sex: Female
  Weight: 78 kg

DRUGS (1)
  1. STRATTERA [Suspect]
     Indication: ATTENTION DEFICIT/HYPERACTIVITY DISORDER
     Dosage: 40 MG DAY
     Dates: start: 20031201, end: 20040506

REACTIONS (8)
  - ABDOMINAL PAIN [None]
  - ABDOMINAL PAIN UPPER [None]
  - DYSPEPSIA [None]
  - EATING DISORDER [None]
  - GASTRIC HAEMORRHAGE [None]
  - SCREAMING [None]
  - STOMACH DISCOMFORT [None]
  - VOMITING [None]
